FAERS Safety Report 23237225 (Version 1)
Quarter: 2023Q4

REPORT INFORMATION
  Report Type: Report from Study
  Country: JP (occurrence: JP)
  Receive Date: 20231128
  Receipt Date: 20231128
  Transmission Date: 20240109
  Serious: Yes (Hospitalization, Other)
  Sender: FDA-Public Use
  Company Number: JP-TAIHO-2023-010050

PATIENT
  Age: 80 Year
  Sex: Male
  Weight: 51.4 kg

DRUGS (5)
  1. ABRAXANE [Suspect]
     Active Substance: PACLITAXEL
     Indication: Lung neoplasm malignant
     Route: 041
     Dates: start: 20231003, end: 20231003
  2. CARBOPLATIN [Suspect]
     Active Substance: CARBOPLATIN
     Indication: Lung neoplasm malignant
     Route: 041
     Dates: start: 20231003, end: 20231003
  3. FOSNETUPITANT CHLORIDE HYDROCHLORIDE [Suspect]
     Active Substance: FOSNETUPITANT CHLORIDE HYDROCHLORIDE
     Indication: Prophylaxis of nausea and vomiting
     Dosage: THE 1ST DOSE
     Route: 041
     Dates: start: 20231003, end: 20231003
  4. KEYTRUDA [Suspect]
     Active Substance: PEMBROLIZUMAB
     Indication: Lung neoplasm malignant
     Route: 041
     Dates: start: 20231003, end: 20231003
  5. PALONOSETRON HYDROCHLORIDE [Concomitant]
     Active Substance: PALONOSETRON HYDROCHLORIDE
     Indication: Prophylaxis of nausea and vomiting

REACTIONS (4)
  - COVID-19 [Recovering/Resolving]
  - Febrile neutropenia [Recovered/Resolved]
  - Hiccups [Recovered/Resolved]
  - Vomiting [Unknown]

NARRATIVE: CASE EVENT DATE: 20231001
